FAERS Safety Report 8024903-4 (Version None)
Quarter: 2012Q1

REPORT INFORMATION
  Report Type: 
  Country: None (occurrence: None)
  Receive Date: 20120105
  Receipt Date: 20111227
  Transmission Date: 20120608
  Serious: Yes (Hospitalization)
  Sender: FDA-Public Use
  Company Number: JP-JNJFOC-20111204946

PATIENT
  Age: 43 Year
  Sex: Male
  Weight: 92 kg

DRUGS (5)
  1. REMICADE [Suspect]
     Dosage: 3 INFUSIONS TOTAL
     Route: 042
     Dates: start: 20111019
  2. AZULFIDINE [Concomitant]
     Indication: ANKYLOSING SPONDYLITIS
     Route: 048
     Dates: start: 20100701
  3. REMICADE [Suspect]
     Route: 042
     Dates: start: 20111114
  4. OLOPATADINE HCL [Concomitant]
     Indication: PROPHYLAXIS
     Route: 048
     Dates: start: 20111114
  5. REMICADE [Suspect]
     Indication: ANKYLOSING SPONDYLITIS
     Route: 042
     Dates: start: 20111005

REACTIONS (2)
  - FALL [None]
  - FRACTURE [None]
